FAERS Safety Report 22158352 (Version 5)
Quarter: 2023Q2

REPORT INFORMATION
  Report Type: Report from Study
  Country: CA (occurrence: CA)
  Receive Date: 20230331
  Receipt Date: 20230530
  Transmission Date: 20230721
  Serious: Yes (Hospitalization, Other)
  Sender: FDA-Public Use
  Company Number: CA-KOREA IPSEN Pharma-2023-04330

PATIENT
  Age: 46 Year
  Sex: Female

DRUGS (11)
  1. LANREOTIDE ACETATE [Suspect]
     Active Substance: LANREOTIDE ACETATE
     Indication: Gastroenteropancreatic neuroendocrine tumour disease
     Dosage: 120 MG, EVERY 4 WEEKS
     Route: 058
     Dates: start: 20230123
  2. METFORMIN [Concomitant]
     Active Substance: METFORMIN HYDROCHLORIDE
     Dosage: 500 CO, BID
  3. ALDACTONE [Concomitant]
     Active Substance: SPIRONOLACTONE
     Dosage: 25MG, 2 CO, BID
  4. JANUMET [Concomitant]
     Active Substance: METFORMIN HYDROCHLORIDE\SITAGLIPTIN PHOSPHATE
     Dosage: 100 1 CO DIE
  5. DAPAGLIFLOZIN [Concomitant]
     Active Substance: DAPAGLIFLOZIN
     Dosage: 10 1 CO DIE
  6. BISOPROLOL [Concomitant]
     Active Substance: BISOPROLOL
     Dosage: 5MG, 1 CO, DIE
  7. ATIVAN [Concomitant]
     Active Substance: LORAZEPAM
     Dosage: 1 CO DIE
  8. LEVOTHYROXINE [Concomitant]
     Active Substance: LEVOTHYROXINE
     Dosage: 100 1 CO DIE EXCEPT SUNDAY
  9. LASIX [Concomitant]
     Active Substance: FUROSEMIDE
     Dosage: 20 MG 1 CO DIE
  10. KETOCONAZOLE [Concomitant]
     Active Substance: KETOCONAZOLE
     Dosage: 200 MG 4 CO
  11. SANDOSTATIN [Concomitant]
     Active Substance: OCTREOTIDE ACETATE

REACTIONS (10)
  - Metastases to spine [Unknown]
  - Pyrexia [Recovered/Resolved]
  - Cushing^s syndrome [Unknown]
  - Fatigue [Unknown]
  - Product dose omission issue [Unknown]
  - Fatigue [Unknown]
  - Dysphonia [Unknown]
  - Pain [Not Recovered/Not Resolved]
  - Fatigue [Not Recovered/Not Resolved]
  - Pyrexia [Not Recovered/Not Resolved]

NARRATIVE: CASE EVENT DATE: 20230201
